FAERS Safety Report 21422220 (Version 2)
Quarter: 2022Q4

REPORT INFORMATION
  Report Type: Report from Study
  Country: US (occurrence: US)
  Receive Date: 20221007
  Receipt Date: 20221117
  Transmission Date: 20230112
  Serious: Yes (Other)
  Sender: FDA-Public Use
  Company Number: US-GILEAD-2022-0600576

PATIENT
  Age: 54 Year
  Sex: Male
  Weight: 114.1 kg

DRUGS (2)
  1. IDELALISIB [Suspect]
     Active Substance: IDELALISIB
     Indication: B-cell lymphoma
     Dosage: 150 MG
     Route: 048
     Dates: start: 20190925, end: 20191218
  2. IDELALISIB [Suspect]
     Active Substance: IDELALISIB
     Dosage: 100 MG
     Route: 048
     Dates: start: 20191219, end: 20200923

REACTIONS (12)
  - Basal cell carcinoma [Recovered/Resolved]
  - Metapneumovirus infection [Recovered/Resolved]
  - Conjunctivitis [Recovered/Resolved]
  - Pleuritic pain [Recovered/Resolved]
  - Dyspnoea [Recovered/Resolved]
  - Chills [Unknown]
  - Skin lesion [Recovered/Resolved]
  - Cough [Recovered/Resolved]
  - Pleuritic pain [Unknown]
  - Dry eye [Unknown]
  - Rash erythematous [Unknown]
  - Conjunctival irritation [Unknown]

NARRATIVE: CASE EVENT DATE: 20191024
